FAERS Safety Report 14269991 (Version 2)
Quarter: 2018Q2

REPORT INFORMATION
  Report Type: Spontaneous
  Country: US (occurrence: US)
  Receive Date: 20171211
  Receipt Date: 20180514
  Transmission Date: 20180711
  Serious: Yes (Other)
  Sender: FDA-Public Use
  Company Number: US-OTSUKA-2016_019023

PATIENT
  Sex: Female

DRUGS (3)
  1. REXULTI [Suspect]
     Active Substance: BREXPIPRAZOLE
     Indication: BIPOLAR DISORDER
     Dosage: 0.5 MG, QD
     Route: 048
     Dates: start: 20160725, end: 20160726
  2. ABILIFY [Suspect]
     Active Substance: ARIPIPRAZOLE
     Dosage: UNK
     Route: 048
     Dates: start: 20160727
  3. ABILIFY [Suspect]
     Active Substance: ARIPIPRAZOLE
     Indication: BIPOLAR DISORDER
     Dosage: 2 MG, QD
     Route: 048

REACTIONS (6)
  - Thirst [Recovered/Resolved]
  - Loss of personal independence in daily activities [Not Recovered/Not Resolved]
  - Depression [Not Recovered/Not Resolved]
  - Off label use [Unknown]
  - Somnolence [Not Recovered/Not Resolved]
  - Prescribed underdose [Unknown]
